FAERS Safety Report 6277243-8 (Version None)
Quarter: 2009Q3

REPORT INFORMATION
  Report Type: 
  Country: None (occurrence: None)
  Receive Date: 20090722
  Receipt Date: 20090303
  Transmission Date: 20100115
  Serious: Yes (Hospitalization)
  Sender: FDA-Public Use
  Company Number: US-BRISTOL-MYERS SQUIBB COMPANY-14527923

PATIENT
  Age: 38 Year
  Sex: Female
  Weight: 116 kg

DRUGS (11)
  1. COUMADIN [Suspect]
     Indication: THROMBOSIS
     Dates: start: 20090227
  2. LOVENOX [Suspect]
     Indication: THROMBOSIS
     Dates: start: 20090224
  3. MOTRIN [Suspect]
  4. PROMETHAZINE [Suspect]
  5. WARFARIN SODIUM [Suspect]
     Dosage: WARFARIN 5MG AND 2.5MG TO EQUAL 7.5MG DAILY
  6. TOPAMAX [Concomitant]
  7. TRAZODONE HCL [Concomitant]
     Dosage: EVERY NIGHT
  8. KLONOPIN [Concomitant]
     Dosage: EVERY NIGHT
  9. PRISTIQ [Concomitant]
  10. MULTI-VITAMIN [Concomitant]
  11. PROTONIX [Concomitant]

REACTIONS (5)
  - AMNESIA [None]
  - CLUMSINESS [None]
  - CONTUSION [None]
  - HEADACHE [None]
  - NAUSEA [None]
